FAERS Safety Report 20807380 (Version 1)
Quarter: 2022Q2

REPORT INFORMATION
  Report Type: Spontaneous
  Country: CN (occurrence: CN)
  Receive Date: 20220510
  Receipt Date: 20220510
  Transmission Date: 20220720
  Serious: Yes (Hospitalization)
  Sender: FDA-Public Use
  Company Number: CN-STRIDES ARCOLAB LIMITED-2022SP005092

PATIENT
  Age: 43 Year
  Sex: Female

DRUGS (1)
  1. DEXAMETHASONE [Suspect]
     Active Substance: DEXAMETHASONE
     Indication: Central nervous system infection
     Dosage: 40 MILLIGRAM, UNKNOWN
     Route: 065
     Dates: start: 202007

REACTIONS (5)
  - Cavernous sinus syndrome [Recovered/Resolved]
  - Mycobacterium chelonae infection [Recovered/Resolved]
  - Pseudoaneurysm infection [Unknown]
  - Arteritis infective [Unknown]
  - Off label use [Unknown]

NARRATIVE: CASE EVENT DATE: 20200101
